FAERS Safety Report 9551463 (Version 3)
Quarter: 2013Q4

REPORT INFORMATION
  Report Type: Report from Study
  Country: US (occurrence: US)
  Receive Date: 20130925
  Receipt Date: 20131111
  Transmission Date: 20140711
  Serious: Yes (Hospitalization)
  Sender: FDA-Public Use
  Company Number: US-ALEXION-A201302306

PATIENT
  Age: 76 Year
  Sex: Female

DRUGS (7)
  1. SOLIRIS [Suspect]
     Indication: PAROXYSMAL NOCTURNAL HAEMOGLOBINURIA
     Dosage: UNK
     Route: 042
  2. SOLIRIS [Suspect]
     Dosage: 900 MG, SINGLE
     Route: 042
     Dates: start: 20130920, end: 20130920
  3. SIMVASTATIN [Concomitant]
     Dosage: UNK
  4. LEVOXYL [Concomitant]
     Dosage: UNK
  5. BIOTIN [Concomitant]
     Dosage: UNK
  6. FOLIC ACID [Concomitant]
     Dosage: UNK
  7. ACTONEL [Concomitant]
     Dosage: UNK

REACTIONS (1)
  - Hip fracture [Recovering/Resolving]
